FAERS Safety Report 4321488-0 (Version None)
Quarter: 2004Q1

REPORT INFORMATION
  Report Type: 
  Country: None (occurrence: None)
  Receive Date: 20040322
  Receipt Date: 20030610
  Transmission Date: 20041129
  Serious: No
  Sender: FDA-Public Use
  Company Number: US-BRISTOL-MYERS SQUIBB COMPANY-12301016

PATIENT
  Age: 23 Year
  Sex: Female
  Weight: 57 kg

DRUGS (1)
  1. VAGISTAT-1 [Suspect]
     Indication: VAGINAL MYCOSIS
     Route: 067
     Dates: start: 20030610, end: 20030610

REACTIONS (3)
  - OEDEMA GENITAL [None]
  - VAGINAL PAIN [None]
  - VAGINAL SWELLING [None]
